FAERS Safety Report 7634438-6 (Version None)
Quarter: 2011Q3

REPORT INFORMATION
  Report Type: 
  Country: None (occurrence: None)
  Receive Date: 20110725
  Receipt Date: 20110711
  Transmission Date: 20111222
  Serious: Yes (Other)
  Sender: FDA-Public Use
  Company Number: PHHY2011CL61860

PATIENT
  Sex: Female

DRUGS (4)
  1. CLOZAPINE [Suspect]
     Dosage: 100 MG
  2. CLOZAPINE [Suspect]
     Dosage: 250 MG
  3. CLOZAPINE [Suspect]
     Indication: SCHIZOPHRENIA
     Dosage: 25 MG, DAILY
     Dates: start: 20110615
  4. CLOZAPINE [Suspect]
     Dosage: 200 MG

REACTIONS (8)
  - DEPRESSION [None]
  - LISTLESS [None]
  - HAEMATOCRIT DECREASED [None]
  - LIVER DISORDER [None]
  - DIARRHOEA [None]
  - DECREASED APPETITE [None]
  - RED BLOOD CELL SEDIMENTATION RATE INCREASED [None]
  - FATIGUE [None]
